FAERS Safety Report 22620010 (Version 1)
Quarter: 2023Q2

REPORT INFORMATION
  Report Type: Spontaneous
  Country: US (occurrence: US)
  Receive Date: 20230620
  Receipt Date: 20230620
  Transmission Date: 20230722
  Serious: No
  Sender: FDA-Public Use
  Company Number: US-IGSA-BIG0018933

PATIENT
  Age: 8 Year
  Sex: Female

DRUGS (1)
  1. HYPERRAB [Suspect]
     Active Substance: HUMAN RABIES VIRUS IMMUNE GLOBULIN
     Indication: Exposure to communicable disease
     Dosage: 1 DOSAGE FORM
     Route: 030

REACTIONS (2)
  - Product administered at inappropriate site [Not Recovered/Not Resolved]
  - Injection site pain [Not Recovered/Not Resolved]
